FAERS Safety Report 8491792-3 (Version None)
Quarter: 2012Q3

REPORT INFORMATION
  Report Type: 
  Country: None (occurrence: None)
  Receive Date: 20120706
  Receipt Date: 20120626
  Transmission Date: 20120928
  Serious: Yes (Hospitalization)
  Sender: FDA-Public Use
  Company Number: OM-SANOFI-AVENTIS-2012SA046567

PATIENT
  Age: 72 Year

DRUGS (5)
  1. ENOXAPARIN SODIUM [Suspect]
     Route: 065
     Dates: start: 20120329, end: 20120331
  2. ENOXAPARIN SODIUM [Suspect]
     Route: 065
     Dates: start: 20120407, end: 20120409
  3. DICLOFENAC SODIUM [Concomitant]
     Indication: PAIN MANAGEMENT
     Route: 030
     Dates: start: 20120328, end: 20120329
  4. RANITIDINE [Concomitant]
     Dosage: ROUTE: IV AND ORAL
     Route: 042
     Dates: start: 20120328
  5. RANITIDINE [Concomitant]
     Indication: ANTACID THERAPY
     Dosage: ROUTE: IV AND ORAL
     Route: 048
     Dates: start: 20120328

REACTIONS (2)
  - PROCEDURAL HAEMORRHAGE [None]
  - DEVICE RELATED INFECTION [None]
